FAERS Safety Report 5990180-9 (Version None)
Quarter: 2008Q4

REPORT INFORMATION
  Report Type: 
  Country: None (occurrence: None)
  Receive Date: 20081211
  Receipt Date: 20081110
  Transmission Date: 20090506
  Serious: No
  Sender: FDA-Public Use
  Company Number: US-BAYER-200838289NA

PATIENT
  Age: 53 Year
  Sex: Male

DRUGS (4)
  1. LEVITRA [Suspect]
     Indication: ERECTILE DYSFUNCTION
  2. ASPIRIN [Concomitant]
  3. CELEXA [Concomitant]
  4. LITHIUM [Concomitant]

REACTIONS (1)
  - NO ADVERSE EVENT [None]
